FAERS Safety Report 5210464-1 (Version None)
Quarter: 2007Q1

REPORT INFORMATION
  Report Type: 
  Country: None (occurrence: None)
  Receive Date: 20070116
  Receipt Date: 20070116
  Transmission Date: 20070707
  Serious: No
  Sender: FDA-Public Use
  Company Number: None

PATIENT
  Age: 45 Year
  Sex: Female
  Weight: 90.7194 kg

DRUGS (10)
  1. QUININE SULFATE [Suspect]
     Indication: MUSCLE SPASMS
     Dosage: 1 CAPSULE 3 TIMES A DAY ORALLY
     Route: 048
     Dates: start: 20061128, end: 20070104
  2. PB [Concomitant]
  3. DILANTIN [Concomitant]
  4. DOCUSATE [Concomitant]
  5. RESTORIL [Concomitant]
  6. ISORDIL [Concomitant]
  7. ESTRADIOL [Concomitant]
  8. LIPITOR [Concomitant]
  9. OXYBUTYNIN CHLORIDE [Concomitant]
  10. MORPHINE [Concomitant]

REACTIONS (7)
  - ABDOMINAL PAIN [None]
  - CHEST PAIN [None]
  - DEPRESSION [None]
  - DIZZINESS [None]
  - DYSPNOEA [None]
  - EYE DISORDER [None]
  - HEART RATE IRREGULAR [None]
